FAERS Safety Report 9356244 (Version 1)
Quarter: 2013Q2

REPORT INFORMATION
  Report Type: Spontaneous
  Country: DE (occurrence: DE)
  Receive Date: 20130619
  Receipt Date: 20130619
  Transmission Date: 20140414
  Serious: Yes (Other)
  Sender: FDA-Public Use
  Company Number: DE-GLAXOSMITHKLINE-D0079883A

PATIENT
  Sex: Male

DRUGS (1)
  1. ARIXTRA [Suspect]
     Indication: TENDON INJURY
     Route: 065
     Dates: start: 201302, end: 201305

REACTIONS (2)
  - Hodgkin^s disease [Unknown]
  - Lymphadenopathy [Not Recovered/Not Resolved]
